FAERS Safety Report 17004426 (Version 1)
Quarter: 2019Q4

REPORT INFORMATION
  Report Type: Spontaneous
  Country: NL (occurrence: DK)
  Receive Date: 20191107
  Receipt Date: 20191107
  Transmission Date: 20200122
  Serious: Yes (Other)
  Sender: FDA-Public Use
  Company Number: DK-FRESENIUS KABI-FK201912115

PATIENT
  Age: 67 Year
  Sex: Female

DRUGS (6)
  1. TRASTUZUMAB. [Suspect]
     Active Substance: TRASTUZUMAB
     Indication: BREAST CANCER
     Dosage: STYRKE: 150 MG.
     Route: 065
     Dates: start: 20171213, end: 20181111
  2. CYCLOPHOSPHAMIDE. [Suspect]
     Active Substance: CYCLOPHOSPHAMIDE
     Indication: BREAST CANCER
     Dosage: STRENGTH: UNKNOWN.
     Route: 065
     Dates: start: 20171006, end: 20171117
  3. EPIRUBICIN HYDROCHLORIDE. [Suspect]
     Active Substance: EPIRUBICIN HYDROCHLORIDE
     Indication: BREAST CANCER
     Dosage: STRENGTH: 2 MG/ML.
     Route: 065
     Dates: start: 20171006, end: 20171117
  4. PACLITAXEL 6MG/ML CONCENTRATE FOR SOLUTION FOR INFUSION [Suspect]
     Active Substance: PACLITAXEL
     Indication: BREAST CANCER
     Dosage: STYRKE: 6 MG/ML.
     Route: 065
     Dates: start: 20171213, end: 20180215
  5. LETROZOLE. [Concomitant]
     Active Substance: LETROZOLE
     Indication: HORMONE THERAPY
     Dosage: STRENGTH: 2,5 MG.
     Route: 048
     Dates: start: 201802
  6. ZOLEDRONIC ACID MONOHYDRATE [Concomitant]
     Active Substance: ZOLEDRONIC ACID
     Indication: OSTEOPOROSIS PROPHYLAXIS
     Dosage: STRENGTH: 4 MG/ 5 ML.
     Route: 042
     Dates: start: 20171027, end: 20180424

REACTIONS (3)
  - Cardiac dysfunction [Not Recovered/Not Resolved]
  - Cardiac failure [Recovering/Resolving]
  - Dyspnoea [Recovering/Resolving]

NARRATIVE: CASE EVENT DATE: 201808
